FAERS Safety Report 6179994-2 (Version None)
Quarter: 2009Q2

REPORT INFORMATION
  Report Type: 
  Country: None (occurrence: None)
  Receive Date: 20090505
  Receipt Date: 20090429
  Transmission Date: 20091009
  Serious: Yes (Death)
  Sender: FDA-Public Use
  Company Number: US-GENENTECH-280280

PATIENT
  Sex: Male
  Weight: 112.3 kg

DRUGS (20)
  1. METHOTREXATE [Suspect]
     Indication: RHEUMATOID ARTHRITIS
     Dosage: UNK MG, DAYS 1+15
     Route: 042
  2. BLINDED PLACEBO [Suspect]
     Indication: RHEUMATOID ARTHRITIS
     Dosage: UNK MG, DAYS 1+15
     Route: 042
  3. BLINDED RITUXIMAB [Suspect]
     Indication: RHEUMATOID ARTHRITIS
     Dosage: UNK MG, DAYS 1+15
     Route: 042
  4. RITUXAN [Suspect]
     Indication: RHEUMATOID ARTHRITIS
     Dosage: 1000 MG, DAYS 1+15
     Route: 042
     Dates: start: 20061016
  5. WELLBUTRIN [Concomitant]
     Indication: DEPRESSION
     Dosage: UNK
     Dates: start: 20070816
  6. BENICAR [Concomitant]
     Indication: HYPERTENSION
     Dosage: UNK
     Dates: start: 20070816
  7. BONIVA [Concomitant]
     Indication: OSTEOPOROSIS
     Dosage: UNK
     Dates: start: 20070901
  8. LIPITOR [Concomitant]
     Indication: DYSLIPIDAEMIA
     Dosage: UNK
     Dates: start: 20070831
  9. LEXAPRO [Concomitant]
     Indication: DEPRESSION
     Dosage: UNK
     Dates: start: 20090105
  10. FOLIC ACID [Concomitant]
     Indication: MEDICAL DIET
     Dosage: UNK
     Dates: start: 20050525
  11. ATACAND [Concomitant]
     Indication: HYPERTENSION
     Dosage: UNK
     Dates: start: 20030101
  12. TESTOSTERONE [Concomitant]
     Indication: ANDROGEN DEFICIENCY
     Dosage: UNK
     Dates: start: 20010101
  13. ACTONEL [Concomitant]
     Indication: OSTEOPOROSIS
     Dosage: UNK
     Dates: start: 20051101
  14. PREVACID [Concomitant]
     Indication: PEPTIC ULCER
     Dosage: UNK
  15. EFFEXOR [Concomitant]
     Indication: DEPRESSION
     Dosage: UNK
     Dates: start: 19980101
  16. ANDROGEL [Concomitant]
     Indication: ANDROGEN DEFICIENCY
     Dosage: UNK
     Dates: start: 20010101
  17. CALCIUM [Concomitant]
     Indication: MEDICAL DIET
     Dosage: UNK
     Dates: start: 19980101
  18. METHOTREXATE [Concomitant]
     Indication: RHEUMATOID ARTHRITIS
     Dosage: 25 MG, 1/WEEK
     Route: 048
     Dates: start: 20060315
  19. ULTRAM [Concomitant]
     Indication: RHEUMATOID ARTHRITIS
     Dosage: 50 MG, PRN
     Route: 048
     Dates: start: 20001206
  20. PREDNISONE [Concomitant]
     Indication: RHEUMATOID ARTHRITIS
     Dosage: 10 MG, QD
     Route: 048
     Dates: start: 20060810

REACTIONS (1)
  - ARRHYTHMIA [None]
